FAERS Safety Report 5457888-5 (Version None)
Quarter: 2007Q3

REPORT INFORMATION
  Report Type: 
  Country: None (occurrence: None)
  Receive Date: 20070917
  Receipt Date: 20070904
  Transmission Date: 20080115
  Serious: Yes (Hospitalization)
  Sender: FDA-Public Use
  Company Number: 0709-707

PATIENT
  Age: 28 Year
  Sex: Female

DRUGS (10)
  1. ALBUTEROL SULFATE [Suspect]
     Indication: ASTHMA
     Dosage: 5MG, 12X, INH
     Route: 055
  2. TERBUTALINE SULFATE [Concomitant]
  3. FLUTICASONE PROPIONATE [Concomitant]
  4. FORMOTEROL FUMARATE [Concomitant]
  5. PREDNISOLONE [Concomitant]
  6. VERAPAMIL [Concomitant]
  7. OXYGEN [Concomitant]
  8. MAGNESIUM SULFATE [Concomitant]
  9. AMINOPHYLLINE [Concomitant]
  10. HYDROCORTISONE [Concomitant]

REACTIONS (7)
  - ABDOMINAL PAIN [None]
  - ABDOMINAL RIGIDITY [None]
  - ASTHMA [None]
  - BLOOD PH INCREASED [None]
  - CONDITION AGGRAVATED [None]
  - HYPERLACTACIDAEMIA [None]
  - PO2 INCREASED [None]
